FAERS Safety Report 22068269 (Version 1)
Quarter: 2023Q1

REPORT INFORMATION
  Report Type: Other
  Country: FR (occurrence: FR)
  Receive Date: 20230307
  Receipt Date: 20230307
  Transmission Date: 20230417
  Serious: Yes (Hospitalization, Other)
  Sender: FDA-Public Use
  Company Number: None

PATIENT
  Age: 33 Year
  Sex: Male
  Weight: 53 kg

DRUGS (9)
  1. GANCICLOVIR SODIUM [Suspect]
     Active Substance: GANCICLOVIR SODIUM
     Indication: Prophylaxis against transplant rejection
     Dosage: 250 MILLIGRAM, 250 MG X2
     Route: 065
     Dates: start: 20220122, end: 20220207
  2. CELLCEPT [Suspect]
     Active Substance: MYCOPHENOLATE MOFETIL
     Indication: Prophylaxis against transplant rejection
     Dosage: 500 MILLIGRAM
     Route: 065
     Dates: start: 20220122
  3. VALACYCLOVIR HYDROCHLORIDE [Suspect]
     Active Substance: VALACYCLOVIR HYDROCHLORIDE
     Indication: Prophylaxis against transplant rejection
     Dosage: NR
     Route: 065
     Dates: start: 20220207
  4. CYCLOSPORINE [Suspect]
     Active Substance: CYCLOSPORINE
     Indication: Prophylaxis against transplant rejection
     Dosage: 100 MG/ML
     Route: 065
     Dates: start: 20220122, end: 20220203
  5. MEROPENEM ANHYDROUS [Suspect]
     Active Substance: MEROPENEM ANHYDROUS
     Indication: Prophylaxis against transplant rejection
     Dosage: 6G/JR
     Route: 065
     Dates: start: 20220122, end: 20220211
  6. PROGRAF [Suspect]
     Active Substance: TACROLIMUS
     Indication: Prophylaxis against transplant rejection
     Dosage: 1 MILLIGRAM
     Route: 065
     Dates: start: 20220203
  7. METHYLPREDNISOLONE [Suspect]
     Active Substance: METHYLPREDNISOLONE
     Indication: Prophylaxis against transplant rejection
     Dosage: UNK, NR
     Route: 065
     Dates: start: 20220122
  8. AMBISOME [Suspect]
     Active Substance: AMPHOTERICIN B
     Indication: Prophylaxis against transplant rejection
     Dosage: 150 MILLIGRAM
     Route: 065
     Dates: start: 20220122
  9. TACROLIMUS [Suspect]
     Active Substance: TACROLIMUS
     Indication: Prophylaxis against transplant rejection
     Dosage: UNK
     Route: 065

REACTIONS (2)
  - Hepatic cytolysis [None]
  - Cholestasis [None]

NARRATIVE: CASE EVENT DATE: 20220122
